FAERS Safety Report 20885790 (Version 1)
Quarter: 2022Q2

REPORT INFORMATION
  Report Type: Report from Study
  Country: PK (occurrence: PK)
  Receive Date: 20220527
  Receipt Date: 20220527
  Transmission Date: 20220720
  Serious: Yes (Other)
  Sender: FDA-Public Use
  Company Number: PK-NOVARTISPH-NVSC2022PK109997

PATIENT
  Age: 68 Year
  Sex: Male

DRUGS (2)
  1. SACUBITRIL\VALSARTAN [Suspect]
     Active Substance: SACUBITRIL\VALSARTAN
     Indication: Hypertension
     Dosage: 100 MG, BID
     Route: 048
     Dates: start: 20210227
  2. ASPIRIN [Concomitant]
     Active Substance: ASPIRIN
     Indication: Product used for unknown indication
     Dosage: UNK
     Route: 065

REACTIONS (6)
  - Left ventricular end-diastolic pressure decreased [Unknown]
  - Melanocytic naevus [Not Recovered/Not Resolved]
  - Acrochordon [Not Recovered/Not Resolved]
  - Gastrointestinal disorder [Unknown]
  - Hypotension [Unknown]
  - Product use in unapproved indication [Unknown]

NARRATIVE: CASE EVENT DATE: 20210227
